FAERS Safety Report 5632208-1 (Version None)
Quarter: 2008Q1

REPORT INFORMATION
  Report Type: 
  Country: None (occurrence: None)
  Receive Date: 20080220
  Receipt Date: 20080208
  Transmission Date: 20080703
  Serious: Yes (Hospitalization)
  Sender: FDA-Public Use
  Company Number: JP-ROCHE-544415

PATIENT
  Age: 20 Year
  Sex: Female

DRUGS (3)
  1. TAMIFLU [Suspect]
     Route: 048
     Dates: start: 20080121, end: 20080121
  2. PELEX [Concomitant]
     Route: 048
     Dates: start: 20080121, end: 20080121
  3. CALONAL [Concomitant]
     Route: 048
     Dates: start: 20080121, end: 20080121

REACTIONS (1)
  - ANAPHYLACTOID REACTION [None]
